FAERS Safety Report 10031868 (Version 4)
Quarter: 2014Q4

REPORT INFORMATION
  Report Type: Report from Study
  Country: US (occurrence: US)
  Receive Date: 20140324
  Receipt Date: 20141009
  Transmission Date: 20150528
  Serious: No
  Sender: FDA-Public Use
  Company Number: US-VERTEX PHARMACEUTICALS INC-2014-001137

PATIENT
  Age: 59 Year
  Sex: Female

DRUGS (2)
  1. IVACAFTOR [Suspect]
     Active Substance: IVACAFTOR
     Dosage: 1 PILL PER DAY
     Route: 065
  2. IVACAFTOR [Suspect]
     Active Substance: IVACAFTOR
     Indication: CYSTIC FIBROSIS
     Dosage: UNK
     Route: 065
     Dates: start: 20120327, end: 20140220

REACTIONS (5)
  - Drug dose omission [Recovered/Resolved]
  - Gastrointestinal disorder [Unknown]
  - Immunodeficiency [Unknown]
  - Pharyngitis [Unknown]
  - Nasopharyngitis [Unknown]

NARRATIVE: CASE EVENT DATE: 20140303
